FAERS Safety Report 4320646-9 (Version None)
Quarter: 2004Q1

REPORT INFORMATION
  Report Type: 
  Country: None (occurrence: None)
  Receive Date: 20040315
  Receipt Date: 20040305
  Transmission Date: 20041129
  Serious: No
  Sender: FDA-Public Use
  Company Number: CART-10300

PATIENT
  Age: 39 Year
  Sex: Female
  Weight: 127.9144 kg

DRUGS (1)
  1. CARTICEL [Suspect]
     Indication: ARTHROPATHY
     Dosage: 1 NA ONCE IS
     Dates: start: 20020904, end: 20020904

REACTIONS (4)
  - ARTHRALGIA [None]
  - CHONDROPATHY [None]
  - GRAFT COMPLICATION [None]
  - JOINT CREPITATION [None]
